FAERS Safety Report 9518459 (Version 1)
Quarter: 2013Q1

REPORT INFORMATION
  Report Type: Spontaneous
  Country: US (occurrence: None)
  Receive Date: 20130305
  Receipt Date: 20130305
  Transmission Date: 20140127
  Serious: Yes (Hospitalization)
  Sender: FDA-Public Use
  Company Number: 163-21880-11121951

PATIENT
  Age: 61 Year
  Sex: Female
  Weight: 58.51 kg

DRUGS (20)
  1. REVLIMID [Suspect]
     Indication: PLASMA CELL MYELOMA
     Route: 048
     Dates: start: 20111109
  2. ACYCLOVIR(ACICLOVIR) [Concomitant]
  3. VALTREX(VALACICLOVIR HYDROCHLORIDE) [Concomitant]
  4. DEXAMETHASONE [Concomitant]
  5. XANAX(ALPRAZOLAM) [Concomitant]
  6. ASPIRIN(ACETYLSALICYLIC ACID) [Concomitant]
  7. VITAMIN D (ERGOCALCIFEROL) [Concomitant]
  8. CYMBALTA (DULOXETINE HYDROCHLORIDE) [Concomitant]
  9. VELCADE(BORTEZOMIB) [Concomitant]
  10. NEXIUM [Concomitant]
  11. MAGNESIUM OXIDE(MAGNESIUM OXIDE) [Concomitant]
  12. MICRO-K (POTASSIUM CHLORIDE) [Concomitant]
  13. SODIUM BICARBONATE(SODIUM BICARBONATE) [Concomitant]
  14. PAMIDRONATE(PAMIDRONATE DISODIUM) [Concomitant]
  15. BISACODYL(BISACODYL) [Concomitant]
  16. NITROFURANTOIN(NITROFURANTOIN) [Concomitant]
  17. CHOLECALCIFEROL(COLECALCIFEROL) [Concomitant]
  18. OXYCODONE(OXYCODONE) [Concomitant]
  19. PREDNISONE(PREDNISONE) [Concomitant]
  20. COMPAZINE(PROCHLORPERAZINE EDISYLATE) [Concomitant]

REACTIONS (7)
  - Renal failure acute [None]
  - Dehydration [None]
  - Pancytopenia [None]
  - Fatigue [None]
  - Tremor [None]
  - Migraine [None]
  - Drug ineffective [None]
